FAERS Safety Report 9719008 (Version 1)
Quarter: 2013Q4

REPORT INFORMATION
  Report Type: Report from Study
  Country: EG (occurrence: EG)
  Receive Date: 20131127
  Receipt Date: 20131127
  Transmission Date: 20140711
  Serious: Yes (Other)
  Sender: FDA-Public Use
  Company Number: EG-BAXTER-2013BAX046082

PATIENT
  Sex: 0

DRUGS (14)
  1. AERRANE [Suspect]
     Indication: MAINTENANCE OF ANAESTHESIA
     Route: 055
  2. SODIUM CHLORIDE [Suspect]
     Indication: PANCREATICODUODENECTOMY
     Route: 042
  3. RANITIDINE [Suspect]
     Indication: PREMEDICATION
     Route: 042
  4. MORPHINE [Suspect]
     Indication: PREMEDICATION
     Route: 042
  5. MORPHINE [Suspect]
     Indication: EPIDURAL ANALGESIA
     Route: 008
  6. MORPHINE [Suspect]
     Indication: POSTOPERATIVE ANALGESIA
     Dosage: AS NEEDED
     Route: 042
  7. MIDAZOLAM [Suspect]
     Indication: PREMEDICATION
     Route: 042
  8. BUPIVACAINE [Suspect]
     Indication: EPIDURAL ANALGESIA
     Route: 008
  9. FENTANYL [Suspect]
     Indication: INDUCTION OF ANAESTHESIA
     Route: 065
  10. THIOPENTAL SODIUM [Suspect]
     Indication: INDUCTION OF ANAESTHESIA
     Route: 065
  11. VECURONIUM [Suspect]
     Indication: ENDOTRACHEAL INTUBATION
     Route: 065
  12. NEOSTIGMINE [Suspect]
     Indication: NEUROMUSCULAR BLOCKADE REVERSAL
     Route: 042
  13. ATROPINE [Suspect]
     Indication: NEUROMUSCULAR BLOCKADE REVERSAL
     Route: 042
  14. PARACETAMOL [Suspect]
     Indication: POSTOPERATIVE ANALGESIA
     Route: 065

REACTIONS (4)
  - Sepsis [Unknown]
  - Acute respiratory distress syndrome [Unknown]
  - Wound infection [Unknown]
  - Pneumonia [Unknown]
